FAERS Safety Report 4871835-6 (Version None)
Quarter: 2006Q1

REPORT INFORMATION
  Report Type: 
  Country: None (occurrence: None)
  Receive Date: 20060104
  Receipt Date: 20051005
  Transmission Date: 20060701
  Serious: Yes (Hospitalization)
  Sender: FDA-Public Use
  Company Number: US-MERCK-0510USA04487

PATIENT
  Age: 27 Year
  Sex: Female
  Weight: 73 kg

DRUGS (4)
  1. VIOXX [Suspect]
     Indication: BACK PAIN
     Route: 048
  2. FLEXERIL [Concomitant]
     Route: 065
  3. [THERAPY UNSPECIFIED] [Concomitant]
     Route: 065
  4. VIOXX [Suspect]
     Indication: PLANTAR FASCIITIS
     Route: 048

REACTIONS (18)
  - ABDOMINAL PAIN [None]
  - CRYING [None]
  - DEHYDRATION [None]
  - DEPRESSION [None]
  - FATIGUE [None]
  - INFECTION [None]
  - INSOMNIA [None]
  - MIGRAINE [None]
  - MUSCLE SPASMS [None]
  - MUSCLE STRAIN [None]
  - OTITIS MEDIA [None]
  - PALPITATIONS [None]
  - PANIC ATTACK [None]
  - PHARYNGITIS [None]
  - SINUSITIS [None]
  - TACHYCARDIA [None]
  - URINARY TRACT INFECTION [None]
  - VAGINAL INFECTION [None]
